FAERS Safety Report 21284645 (Version 2)
Quarter: 2022Q3

REPORT INFORMATION
  Report Type: Spontaneous
  Country: EG (occurrence: EG)
  Receive Date: 20220902
  Receipt Date: 20220914
  Transmission Date: 20221027
  Serious: Yes (Other)
  Sender: FDA-Public Use
  Company Number: EG-NOVOPROD-953214

PATIENT
  Age: 704 Month
  Sex: Female
  Weight: 100 kg

DRUGS (2)
  1. INSULIN HUMAN [Suspect]
     Active Substance: INSULIN HUMAN
     Dosage: UNK
     Route: 058
     Dates: start: 202208
  2. INSULIN HUMAN [Suspect]
     Active Substance: INSULIN HUMAN
     Indication: Product used for unknown indication
     Dosage: 50 OR 60 IU /DAY
     Route: 058
     Dates: start: 2008, end: 202208

REACTIONS (2)
  - Heart rate increased [Not Recovered/Not Resolved]
  - Angina pectoris [Not Recovered/Not Resolved]
